FAERS Safety Report 9854319 (Version 1)
Quarter: 2014Q1

REPORT INFORMATION
  Report Type: Spontaneous
  Country: US (occurrence: US)
  Receive Date: 20140130
  Receipt Date: 20140130
  Transmission Date: 20141002
  Serious: Yes (Other)
  Sender: FDA-Public Use
  Company Number: US-BIOGENIDEC-2014BI008348

PATIENT
  Sex: Male
  Weight: 77 kg

DRUGS (10)
  1. AVONEX [Suspect]
     Indication: MULTIPLE SCLEROSIS
     Route: 030
     Dates: start: 20000219
  2. BACLOFEN [Concomitant]
  3. COPAXONE [Concomitant]
  4. WARFARIN [Concomitant]
     Route: 048
  5. ASPIRIN [Concomitant]
     Route: 048
  6. LANOXIN [Concomitant]
     Route: 048
  7. METOPROLOL [Concomitant]
     Route: 048
  8. VENAFAXINE [Concomitant]
  9. FLOMAX [Concomitant]
     Route: 048
  10. B-12 [Concomitant]

REACTIONS (7)
  - Drug delivery device implantation [Unknown]
  - Spinal fusion surgery [Unknown]
  - Adverse drug reaction [Unknown]
  - Nephrolithiasis [Unknown]
  - Urinary tract infection [Unknown]
  - Prostatic disorder [Unknown]
  - Heart rate irregular [Unknown]
